FAERS Safety Report 26112892 (Version 1)
Quarter: 2025Q4

REPORT INFORMATION
  Report Type: Spontaneous
  Country: AR (occurrence: AR)
  Receive Date: 20251202
  Receipt Date: 20251202
  Transmission Date: 20260117
  Serious: Yes (Other)
  Sender: MYLAN
  Company Number: AR-MYLANLABS-2025M1101275

PATIENT
  Sex: Male

DRUGS (1)
  1. CLOZAPINE [Suspect]
     Active Substance: CLOZAPINE
     Indication: Product used for unknown indication
     Dosage: UNK (APPROXIMATE DATE REPORTED AS AUG-2023)

REACTIONS (3)
  - Chronic lymphocytic leukaemia stage 1 [Unknown]
  - B-cell small lymphocytic lymphoma [Unknown]
  - Abdominal pain [Recovered/Resolved]
